FAERS Safety Report 8486606-1 (Version None)
Quarter: 2012Q3

REPORT INFORMATION
  Report Type: 
  Country: None (occurrence: None)
  Receive Date: 20120703
  Receipt Date: 20120621
  Transmission Date: 20120928
  Serious: Yes (Other)
  Sender: FDA-Public Use
  Company Number: DE-ELI_LILLY_AND_COMPANY-DE201206007163

PATIENT
  Sex: Male

DRUGS (1)
  1. OLANZAPINE [Suspect]
     Dosage: 405 MG, UNKNOWN
     Route: 030

REACTIONS (4)
  - FATIGUE [None]
  - HYPOTENSION [None]
  - FEELING ABNORMAL [None]
  - DYSARTHRIA [None]
